FAERS Safety Report 8924106 (Version 1)
Quarter: 2012Q4

REPORT INFORMATION
  Report Type: Spontaneous
  Country: GB (occurrence: None)
  Receive Date: 20121116
  Receipt Date: 20121116
  Transmission Date: 20130627
  Serious: Yes (Hospitalization, Other)
  Sender: FDA-Public Use
  Company Number: 141715

PATIENT
  Age: 43 Year
  Sex: Female

DRUGS (1)
  1. DILTIAZEM HCL [Suspect]

REACTIONS (7)
  - Overdose [None]
  - Hypotension [None]
  - Bradycardia [None]
  - Atrioventricular block complete [None]
  - Pulmonary oedema [None]
  - Left ventricular dysfunction [None]
  - Renal impairment [None]
